FAERS Safety Report 8401179-7 (Version None)
Quarter: 2012Q2

REPORT INFORMATION
  Report Type: 
  Country: None (occurrence: None)
  Receive Date: 20120530
  Receipt Date: 20120530
  Transmission Date: 20120825
  Serious: No
  Sender: FDA-Public Use
  Company Number: None

PATIENT
  Sex: Male
  Weight: 74.8435 kg

DRUGS (1)
  1. NARATRIPTAN [Suspect]
     Indication: MIGRAINE
     Dosage: 2.5 MG EACH MIGRAINE PO
     Route: 048
     Dates: start: 20120401, end: 20120525

REACTIONS (5)
  - PRODUCT QUALITY ISSUE [None]
  - DRUG EFFECT DECREASED [None]
  - NAUSEA [None]
  - VOMITING [None]
  - PRODUCT SUBSTITUTION ISSUE [None]
